FAERS Safety Report 7367878-3 (Version None)
Quarter: 2011Q1

REPORT INFORMATION
  Report Type: 
  Country: None (occurrence: None)
  Receive Date: 20110322
  Receipt Date: 20110311
  Transmission Date: 20110831
  Serious: Yes (Death, Hospitalization, Other)
  Sender: FDA-Public Use
  Company Number: JP-AMGEN-JPNCT2010003613

PATIENT
  Age: 56 Year
  Sex: Female
  Weight: 50 kg

DRUGS (8)
  1. DECADRON [Concomitant]
     Dosage: UNK
     Route: 042
  2. OPSO [Concomitant]
     Dosage: UNK
     Route: 048
  3. PANITUMUMAB [Suspect]
     Indication: COLORECTAL CANCER METASTATIC
     Dosage: 6 MG/KG, Q2WK
     Route: 041
     Dates: start: 20100820, end: 20110121
  4. GASTER [Concomitant]
     Dosage: UNK
     Route: 048
  5. MS CONTIN [Concomitant]
     Route: 048
  6. MORPHINE HYDROCHLORIDE [Concomitant]
     Route: 042
  7. CORTICOSTEROIDS [Concomitant]
     Indication: PROPHYLAXIS
     Dosage: UNK
     Route: 065
  8. LOXONIN [Concomitant]
     Dosage: UNK
     Route: 048

REACTIONS (4)
  - COLORECTAL CANCER [None]
  - DRY SKIN [None]
  - BLOOD POTASSIUM INCREASED [None]
  - PARONYCHIA [None]
